FAERS Safety Report 16576560 (Version 1)
Quarter: 2019Q3

REPORT INFORMATION
  Report Type: Spontaneous
  Country: ES (occurrence: ES)
  Receive Date: 20190716
  Receipt Date: 20190716
  Transmission Date: 20191004
  Serious: Yes (Life-Threatening, Hospitalization)
  Sender: FDA-Public Use
  Company Number: ES-TEVA-2019-ES-1077470

PATIENT
  Age: 44 Year
  Sex: Male
  Weight: 100.1 kg

DRUGS (2)
  1. ALOPURINOL (318A) [Suspect]
     Active Substance: ALLOPURINOL
     Indication: CHRONIC KIDNEY DISEASE
     Dosage: 300 MG/24 HOURS FOR 80 DAYS
     Route: 048
     Dates: start: 20190327, end: 20190614
  2. AZATIOPRINA (45A) [Suspect]
     Active Substance: AZATHIOPRINE
     Indication: LICHEN PLANUS
     Dosage: 50 MG PER 12 HOURS FOR 84 DAYS
     Route: 048
     Dates: start: 20190327, end: 20190618

REACTIONS (1)
  - Pancytopenia [Recovering/Resolving]

NARRATIVE: CASE EVENT DATE: 20190613
